FAERS Safety Report 6861912-2 (Version None)
Quarter: 2010Q3

REPORT INFORMATION
  Report Type: 
  Country: None (occurrence: None)
  Receive Date: 20100720
  Receipt Date: 20100720
  Transmission Date: 20110219
  Serious: Yes (Hospitalization, Disabling)
  Sender: FDA-Public Use
  Company Number: None

PATIENT
  Sex: Male
  Weight: 72.5755 kg

DRUGS (2)
  1. BACTRIM [Suspect]
  2. PENCINIC [Suspect]

REACTIONS (1)
  - STEVENS-JOHNSON SYNDROME [None]
